FAERS Safety Report 4748829-4 (Version None)
Quarter: 2005Q3

REPORT INFORMATION
  Report Type: 
  Country: None (occurrence: None)
  Receive Date: 20050812
  Receipt Date: 20050712
  Transmission Date: 20060218
  Serious: Yes (Hospitalization)
  Sender: FDA-Public Use
  Company Number: 410711

PATIENT
  Age: 54 Year
  Sex: Female
  Weight: 51.3 kg

DRUGS (6)
  1. PEGASYS [Suspect]
     Indication: HEPATITIS C VIRUS
     Dosage: 180 MCG 1 PER WEEK SUBCUTANEOUS
     Route: 058
     Dates: start: 20050516, end: 20050711
  2. COPEGUS [Suspect]
     Indication: HEPATITIS C VIRUS
     Dosage: 1000 MG DAILY 2 PER DAY ORAL
     Route: 048
     Dates: start: 20050516, end: 20050711
  3. GABAPENTIN [Concomitant]
  4. RANITIDINE [Concomitant]
  5. LIPITOR [Concomitant]
  6. FLONASE [Concomitant]

REACTIONS (10)
  - ASTHENIA [None]
  - COUGH [None]
  - DECREASED APPETITE [None]
  - DIZZINESS [None]
  - DYSPNOEA [None]
  - NEUTROPHIL COUNT DECREASED [None]
  - PHARYNGOLARYNGEAL PAIN [None]
  - PYREXIA [None]
  - TINNITUS [None]
  - WHITE BLOOD CELL COUNT DECREASED [None]
